FAERS Safety Report 7141902-5 (Version None)
Quarter: 2010Q4

REPORT INFORMATION
  Report Type: 
  Country: None (occurrence: None)
  Receive Date: 20101112
  Receipt Date: 20100921
  Transmission Date: 20110411
  Serious: No
  Sender: FDA-Public Use
  Company Number: 1000016100

PATIENT
  Age: 48 Year
  Sex: Male
  Weight: 113.3 kg

DRUGS (3)
  1. SAVELLA [Suspect]
     Indication: MUSCULOSKELETAL PAIN
     Dosage: 50 MG (50 MG,1 IN 1 D),ORAL
     Route: 048
     Dates: end: 20100727
  2. SAVELLA [Suspect]
     Indication: NECK PAIN
     Dosage: 50 MG (50 MG,1 IN 1 D),ORAL
     Route: 048
     Dates: end: 20100727
  3. LODINE [Concomitant]

REACTIONS (2)
  - PROSTATITIS [None]
  - RECTAL HAEMORRHAGE [None]
